FAERS Safety Report 12940521 (Version 3)
Quarter: 2016Q4

REPORT INFORMATION
  Report Type: Spontaneous
  Country: JP (occurrence: JP)
  Receive Date: 20161115
  Receipt Date: 20161128
  Transmission Date: 20170207
  Serious: Yes (Other)
  Sender: FDA-Public Use
  Company Number: PHJP2016JP032518

PATIENT
  Age: 56 Year
  Sex: Female

DRUGS (1)
  1. IMUSERA [Suspect]
     Active Substance: FINGOLIMOD HYDROCHLORIDE
     Indication: MULTIPLE SCLEROSIS
     Dosage: UNK
     Route: 048
     Dates: start: 2014

REACTIONS (5)
  - Macular degeneration [Unknown]
  - Macular oedema [Unknown]
  - Visual acuity reduced [Recovering/Resolving]
  - Visual impairment [Unknown]
  - Macular hole [Unknown]

NARRATIVE: CASE EVENT DATE: 201512
